FAERS Safety Report 11079274 (Version 2)
Quarter: 2015Q2

REPORT INFORMATION
  Report Type: Spontaneous
  Country: US (occurrence: US)
  Receive Date: 20150430
  Receipt Date: 20150507
  Transmission Date: 20150821
  Serious: No
  Sender: FDA-Public Use
  Company Number: US-HORIZON-DUE-0023-2015

PATIENT
  Age: 69 Year
  Sex: Male

DRUGS (11)
  1. BENAZEPRIL [Concomitant]
     Active Substance: BENAZEPRIL\BENAZEPRIL HYDROCHLORIDE
     Dosage: 20 MG EVERY DAY BEFORE NOON
  2. PRAVASTATIN SODIUM. [Concomitant]
     Active Substance: PRAVASTATIN SODIUM
     Dosage: 80 MG EVERY NIGHT AT BEDTIME
  3. ISOSORBIDE MONO [Concomitant]
     Dosage: 60 MG EYER DAY BEFORE NOON
  4. METHADONE [Concomitant]
     Active Substance: METHADONE HYDROCHLORIDE
     Indication: PAIN
     Dosage: 180MG FOR 12 YEARS, STARTED GETTING OFF 2 MONTHS AGO
  5. FINASTERIDE. [Concomitant]
     Active Substance: FINASTERIDE
     Dosage: 5 MG EVERY DAY BEFORE NOON
  6. DILTIAZEM [Concomitant]
     Active Substance: DILTIAZEM
     Dosage: 120 MG EVERY NIGHT AT BEDTIME
  7. NORVASC [Concomitant]
     Active Substance: AMLODIPINE BESYLATE
     Dosage: 5 MG EVERY DAY BEFORE NOON
  8. DUEXIS [Suspect]
     Active Substance: FAMOTIDINE\IBUPROFEN
     Indication: ARTHRITIS
     Dates: start: 20150417
  9. FENOFIBRATE. [Concomitant]
     Active Substance: FENOFIBRATE
     Dosage: 160 MG EVERY NIGHT AT BEDTIME
  10. FUROSEMIDE. [Concomitant]
     Active Substance: FUROSEMIDE
     Dosage: 40 MG EVERY DAY BEFORE NOON
  11. CYMBALTA [Concomitant]
     Active Substance: DULOXETINE HYDROCHLORIDE
     Dosage: 90 MG EVERY DAY BEFORE NOON

REACTIONS (3)
  - Cold sweat [Recovering/Resolving]
  - Tremor [Recovering/Resolving]
  - Incorrect dose administered [Unknown]

NARRATIVE: CASE EVENT DATE: 20150417
